FAERS Safety Report 10574072 (Version 2)
Quarter: 2015Q1

REPORT INFORMATION
  Report Type: Report from Study
  Country: ZA (occurrence: ZA)
  Receive Date: 20141110
  Receipt Date: 20150205
  Transmission Date: 20150720
  Serious: Yes (Other)
  Sender: FDA-Public Use
  Company Number: ZA-GLAXOSMITHKLINE-ZA2014GSK016073

PATIENT
  Age: 39 Year
  Sex: Female

DRUGS (10)
  1. RIFAMPIN. [Suspect]
     Active Substance: RIFAMPIN
     Indication: PULMONARY TUBERCULOSIS
     Dosage: UNK UNK, U
     Dates: start: 20140416
  2. FOLATE [Concomitant]
     Active Substance: FOLATE SODIUM
     Indication: SUPPLEMENTATION THERAPY
  3. TENOFOVIR DISOPROXIL FUMARATE [Suspect]
     Active Substance: TENOFOVIR DISOPROXIL FUMARATE
     Indication: HIV INFECTION
     Dosage: UNK
     Route: 048
     Dates: start: 20140408
  4. STAVUDINE. [Suspect]
     Active Substance: STAVUDINE
     Indication: HIV INFECTION
     Route: 048
     Dates: start: 20050501, end: 20140408
  5. NEVIRAPINE. [Suspect]
     Active Substance: NEVIRAPINE
     Indication: HIV INFECTION
     Route: 048
     Dates: start: 20050501, end: 20140408
  6. KALETRA [Suspect]
     Active Substance: LOPINAVIR\RITONAVIR
     Indication: HIV INFECTION
     Dosage: TOTAL DAILY DOSE OF 8 TABLETS/CAPSULES
     Route: 048
     Dates: start: 20140408
  7. LAMIVUDINE. [Suspect]
     Active Substance: LAMIVUDINE
     Indication: HIV INFECTION
     Dosage: UNK UNK, U
     Route: 048
     Dates: start: 20050501
  8. ISONIAZIDE [Suspect]
     Active Substance: ISONIAZID
     Indication: PULMONARY TUBERCULOSIS
     Dosage: UNK, U
     Dates: start: 20140416
  9. ETHAMBUTOL [Suspect]
     Active Substance: ETHAMBUTOL HYDROCHLORIDE
     Indication: PULMONARY TUBERCULOSIS
     Dosage: UNK, U
     Dates: start: 20140416
  10. PYRAZINAMIDE. [Suspect]
     Active Substance: PYRAZINAMIDE
     Indication: PULMONARY TUBERCULOSIS
     Dosage: UNK, U
     Dates: start: 20140416

REACTIONS (10)
  - Premature labour [Unknown]
  - Oligohydramnios [Unknown]
  - Live birth [Unknown]
  - Placental infarction [Unknown]
  - Exposure during pregnancy [Unknown]
  - Pulmonary tuberculosis [Unknown]
  - Placental insufficiency [Unknown]
  - Placental disorder [Unknown]
  - Angiopathy [Unknown]
  - Tuberculosis [Unknown]

NARRATIVE: CASE EVENT DATE: 20140826
